FAERS Safety Report 22355342 (Version 1)
Quarter: 2023Q2

REPORT INFORMATION
  Report Type: Spontaneous
  Country: US (occurrence: US)
  Receive Date: 20230523
  Receipt Date: 20230523
  Transmission Date: 20230722
  Serious: Yes (Hospitalization)
  Sender: FDA-Public Use
  Company Number: US-SANOFI-01624100

PATIENT
  Sex: Female

DRUGS (2)
  1. DUPIXENT [Suspect]
     Active Substance: DUPILUMAB
     Indication: Dermatitis atopic
     Dosage: UNK
  2. VANCOMYCIN [Concomitant]
     Active Substance: VANCOMYCIN
     Indication: Staphylococcal infection
     Dosage: UNK

REACTIONS (1)
  - Renal disorder [Unknown]
